FAERS Safety Report 22588475 (Version 1)
Quarter: 2023Q2

REPORT INFORMATION
  Report Type: Report from Study
  Country: US (occurrence: US)
  Receive Date: 20230612
  Receipt Date: 20230612
  Transmission Date: 20230721
  Serious: Yes (Hospitalization)
  Sender: FDA-Public Use
  Company Number: US-ABBVIE-5281148

PATIENT
  Sex: Female

DRUGS (1)
  1. HUMIRA [Suspect]
     Active Substance: ADALIMUMAB
     Indication: Rheumatoid arthritis
     Dosage: 40 MILLIGRAM
     Route: 058
     Dates: start: 20070305

REACTIONS (10)
  - Fall [Recovering/Resolving]
  - Pneumonia [Unknown]
  - Mobility decreased [Unknown]
  - Blood pressure decreased [Unknown]
  - Face injury [Unknown]
  - Asthenia [Unknown]
  - Balance disorder [Unknown]
  - Blood glucose decreased [Unknown]
  - Facial bones fracture [Unknown]
  - Emotional distress [Unknown]

NARRATIVE: CASE EVENT DATE: 20230101
